FAERS Safety Report 4984401-9 (Version None)
Quarter: 2006Q2

REPORT INFORMATION
  Report Type: 
  Country: None (occurrence: None)
  Receive Date: 20060420
  Receipt Date: 20060414
  Transmission Date: 20061013
  Serious: Yes (Hospitalization)
  Sender: FDA-Public Use
  Company Number: 200610309BFR

PATIENT
  Age: 79 Year
  Sex: Female

DRUGS (2)
  1. CIPROFLOXACIN HCL [Suspect]
     Dosage: 500 MG, BID, ORAL
     Route: 048
     Dates: start: 20060215, end: 20060219
  2. TIENAM [Suspect]
     Dosage: 1 G, TID, ORAL
     Route: 048
     Dates: start: 20060215, end: 20060219

REACTIONS (5)
  - GRAND MAL CONVULSION [None]
  - HYPERGLYCAEMIA [None]
  - HYPOCALCAEMIA [None]
  - HYPOGLYCAEMIA [None]
  - SYNCOPE [None]
